FAERS Safety Report 5463245-8 (Version None)
Quarter: 2007Q3

REPORT INFORMATION
  Report Type: 
  Country: None (occurrence: None)
  Receive Date: 20070920
  Receipt Date: 20070910
  Transmission Date: 20080115
  Serious: Yes (Congenital Anomaly)
  Sender: FDA-Public Use
  Company Number: US-MERCK-0708USA05863

PATIENT
  Sex: Male
  Weight: 4 kg

DRUGS (7)
  1. CRIXIVAN [Suspect]
     Route: 064
  2. DIDANOSINE [Concomitant]
     Route: 064
  3. SUSTIVA [Concomitant]
     Route: 064
  4. LAMIVUDINE [Concomitant]
     Route: 064
  5. NELFINAVIR MESYLATE [Concomitant]
     Route: 064
  6. RITONAVIR [Concomitant]
     Route: 064
  7. ZIDOVUDINE [Concomitant]
     Route: 064

REACTIONS (1)
  - HYPOSPADIAS [None]
